FAERS Safety Report 20401160 (Version 2)
Quarter: 2022Q1

REPORT INFORMATION
  Report Type: Spontaneous
  Country: US (occurrence: US)
  Receive Date: 20220131
  Receipt Date: 20220201
  Transmission Date: 20220423
  Serious: No
  Sender: FDA-Public Use
  Company Number: US-ABBVIE-21K-163-4028647-00

PATIENT
  Sex: Male

DRUGS (1)
  1. HUMIRA [Suspect]
     Active Substance: ADALIMUMAB
     Indication: Psoriatic arthropathy
     Route: 058

REACTIONS (7)
  - Fatigue [Unknown]
  - Mobility decreased [Unknown]
  - Feeling abnormal [Unknown]
  - Ear pain [Unknown]
  - Nausea [Unknown]
  - Hypertension [Recovering/Resolving]
  - Blood cholesterol increased [Recovering/Resolving]
